FAERS Safety Report 6028995-3 (Version None)
Quarter: 2009Q1

REPORT INFORMATION
  Report Type: 
  Country: None (occurrence: None)
  Receive Date: 20090106
  Receipt Date: 20081229
  Transmission Date: 20090719
  Serious: Yes (Hospitalization)
  Sender: FDA-Public Use
  Company Number: US-AMGEN-QUU325992

PATIENT
  Sex: Female

DRUGS (1)
  1. ENBREL [Suspect]
     Indication: RHEUMATOID ARTHRITIS
     Route: 058
     Dates: start: 20060713

REACTIONS (5)
  - GALLBLADDER PAIN [None]
  - LIPOMA OF BREAST [None]
  - PROCEDURAL COMPLICATION [None]
  - RHEUMATOID ARTHRITIS [None]
  - UTERINE DISORDER [None]
